FAERS Safety Report 4630008-2 (Version None)
Quarter: 2005Q2

REPORT INFORMATION
  Report Type: 
  Country: None (occurrence: None)
  Receive Date: 20050408
  Receipt Date: 20050328
  Transmission Date: 20051028
  Serious: Yes (Death)
  Sender: FDA-Public Use
  Company Number: MX-JNJFOC-20050400386

PATIENT
  Age: 15 Year
  Sex: Female
  Weight: 71 kg

DRUGS (1)
  1. HALDOL [Suspect]
     Route: 042

REACTIONS (3)
  - BRAIN OEDEMA [None]
  - HEPATIC CONGESTION [None]
  - MEDICATION ERROR [None]
